FAERS Safety Report 6333477-5 (Version None)
Quarter: 2009Q3

REPORT INFORMATION
  Report Type: 
  Country: None (occurrence: None)
  Receive Date: 20090828
  Receipt Date: 20090817
  Transmission Date: 20100115
  Serious: Yes (Other)
  Sender: FDA-Public Use
  Company Number: US-GILEAD-2009-0021957

PATIENT
  Age: 33 Year
  Sex: Female

DRUGS (4)
  1. VIREAD [Suspect]
     Indication: HEPATITIS B
     Route: 048
  2. EPIVIR [Suspect]
     Route: 048
  3. REYATAZ [Suspect]
     Route: 048
  4. NORVIR [Suspect]
     Route: 048

REACTIONS (1)
  - ABORTION SPONTANEOUS [None]
